FAERS Safety Report 5732504-3 (Version None)
Quarter: 2008Q2

REPORT INFORMATION
  Report Type: 
  Country: None (occurrence: None)
  Receive Date: 20080508
  Receipt Date: 20080429
  Transmission Date: 20081010
  Serious: Yes (Hospitalization, Disabling)
  Sender: FDA-Public Use
  Company Number: US-MERCK-0705USA01436

PATIENT
  Age: 44 Year
  Sex: Female

DRUGS (1)
  1. FOSAMAX [Suspect]
     Indication: OSTEOPOROSIS
     Route: 048
     Dates: start: 19980430, end: 20000907

REACTIONS (14)
  - ADVERSE EVENT [None]
  - BACK DISORDER [None]
  - FAILURE OF IMPLANT [None]
  - MUSCULOSKELETAL DISORDER [None]
  - ORAL INFECTION [None]
  - ORAL PAIN [None]
  - PAIN IN JAW [None]
  - RESORPTION BONE INCREASED [None]
  - SINUSITIS [None]
  - STOMACH DISCOMFORT [None]
  - SUBCUTANEOUS ABSCESS [None]
  - TEMPOROMANDIBULAR JOINT SYNDROME [None]
  - TOOTH INFECTION [None]
  - VESTIBULAR DISORDER [None]
